FAERS Safety Report 8170967-7 (Version None)
Quarter: 2012Q1

REPORT INFORMATION
  Report Type: 
  Country: None (occurrence: None)
  Receive Date: 20120228
  Receipt Date: 20120222
  Transmission Date: 20120608
  Serious: Yes (Hospitalization, Disabling, Other)
  Sender: FDA-Public Use
  Company Number: US-BAYER-2012-005554

PATIENT
  Age: 55 Year
  Sex: Male
  Weight: 93 kg

DRUGS (14)
  1. RESTASIS [Concomitant]
     Indication: DRY EYE
     Dosage: 0.4
  2. BACLOFEN [Concomitant]
     Indication: MUSCLE SPASMS
     Dosage: 10 MG, TID; 1AM, 1PM, 2NIGHT
     Dates: start: 20110328
  3. COQ10 [Concomitant]
     Dosage: 200 MG, QD
  4. SELENIUM [Concomitant]
     Dosage: 100 MG, QD
  5. D3 VIGANTOL FORTE [Concomitant]
     Dosage: 5000 IU, QD
  6. BETASERON [Suspect]
     Dosage: 0.3 MG, QOD
     Route: 058
     Dates: start: 20070208, end: 20120108
  7. ZINC SULFATE [Concomitant]
     Dosage: 50 MG, QD
  8. B-COMPLEX [VITAMIN B NOS] [Concomitant]
     Dosage: UNK UNK, QD
  9. LOVAZA [Concomitant]
     Dosage: 1000 MG, QD
  10. ALLEGRA [Concomitant]
     Indication: MULTIPLE ALLERGIES
     Dosage: 180 MG, QD
  11. OLOPATADINE [Concomitant]
     Indication: MULTIPLE ALLERGIES
     Dosage: 0.2; 1 DROP A DAY
  12. BETASERON [Suspect]
     Indication: MULTIPLE SCLEROSIS
     Dosage: 0.25 MG, QOD
     Route: 058
     Dates: start: 20080201
  13. ASCORBIC ACID [Concomitant]
     Dosage: 500 MG, QD
  14. TUMERIC [Concomitant]
     Dosage: 500 MG, QD

REACTIONS (4)
  - INJECTION SITE CELLULITIS [None]
  - INJECTION SITE ERYTHEMA [None]
  - INJECTION SITE ABSCESS [None]
  - INJECTION SITE PAIN [None]
